FAERS Safety Report 20443729 (Version 2)
Quarter: 2022Q1

REPORT INFORMATION
  Report Type: Spontaneous
  Country: US (occurrence: US)
  Receive Date: 20220208
  Receipt Date: 20220214
  Transmission Date: 20220423
  Serious: No
  Sender: FDA-Public Use
  Company Number: US-Blueprint Medicines Corporation-SP-US-2022-000318

PATIENT
  Age: 56 Year
  Sex: Female

DRUGS (1)
  1. AYVAKIT [Suspect]
     Active Substance: AVAPRITINIB
     Indication: Systemic mastocytosis
     Route: 048
     Dates: start: 20211212, end: 20220204

REACTIONS (11)
  - Facial pain [Unknown]
  - Swelling face [Unknown]
  - Rash [Unknown]
  - Insomnia [Unknown]
  - Lacrimation increased [Unknown]
  - Decreased appetite [Unknown]
  - Nausea [Unknown]
  - White blood cell count decreased [Unknown]
  - Red blood cell count decreased [Unknown]
  - Haemoglobin decreased [Unknown]
  - Adverse drug reaction [Unknown]
